FAERS Safety Report 14488429 (Version 2)
Quarter: 2018Q2

REPORT INFORMATION
  Report Type: Spontaneous
  Country: DE (occurrence: DE)
  Receive Date: 20180205
  Receipt Date: 20180405
  Transmission Date: 20180711
  Serious: Yes (Hospitalization, Other)
  Sender: FDA-Public Use
  Company Number: DE-TEVA-2018-DE-855380

PATIENT
  Age: 65 Year
  Sex: Female
  Weight: 80 kg

DRUGS (9)
  1. RAMIPRIL. [Concomitant]
     Active Substance: RAMIPRIL
     Dates: start: 20000601
  2. AROMASIN [Suspect]
     Active Substance: EXEMESTANE
     Indication: BREAST CANCER METASTATIC
     Dosage: 25 MILLIGRAM DAILY;
     Route: 048
     Dates: start: 20130918, end: 20140418
  3. AFINITOR [Suspect]
     Active Substance: EVEROLIMUS
     Indication: BREAST CANCER METASTATIC
     Dosage: 5 MILLIGRAM DAILY;
     Route: 048
     Dates: start: 20130918, end: 20140418
  4. INSULIN GLARGINE [Suspect]
     Active Substance: INSULIN GLARGINE
     Dosage: 24 IU (INTERNATIONAL UNIT) DAILY; 24 IU, DAILY MORNINGS
     Route: 058
  5. IMMUNOGLOBULINS [Concomitant]
     Active Substance: IMMUNE GLOBULIN NOS
  6. GLIMEPIRIDE. [Suspect]
     Active Substance: GLIMEPIRIDE
     Dosage: 2 MILLIGRAM DAILY; 1.5 TABLET PER DAY (2MG)
     Route: 048
  7. MESALAZIN [Concomitant]
     Active Substance: MESALAMINE
     Dates: start: 20000601
  8. METOPROLOL. [Concomitant]
     Active Substance: METOPROLOL
  9. XGEVA [Concomitant]
     Active Substance: DENOSUMAB
     Dates: start: 20130917

REACTIONS (6)
  - Decreased appetite [Recovered/Resolved]
  - Blood glucose increased [Recovered/Resolved]
  - Weight decreased [Recovered/Resolved]
  - Hypoaesthesia [Unknown]
  - Fatigue [Not Recovered/Not Resolved]
  - Glycosylated haemoglobin increased [Unknown]
